FAERS Safety Report 5158413-9 (Version None)
Quarter: 2006Q4

REPORT INFORMATION
  Report Type: 
  Country: None (occurrence: None)
  Receive Date: 20061115
  Receipt Date: 20061030
  Transmission Date: 20070319
  Serious: Yes (Death, Hospitalization)
  Sender: FDA-Public Use
  Company Number: 102751

PATIENT
  Age: 59 Year
  Sex: Female

DRUGS (8)
  1. HERCEPTIN [Suspect]
     Indication: BREAST CANCER
     Dosage: SEE IMAGE
     Route: 042
     Dates: start: 20020403, end: 20020403
  2. HERCEPTIN [Suspect]
     Indication: BREAST CANCER
     Dosage: SEE IMAGE
     Route: 042
     Dates: start: 20020401, end: 20020506
  3. DOCETAXEL (DOCETAXEL) SOLUTION FOR INJECTION [Suspect]
     Indication: BREAST CANCER
     Dosage: 135 MG, Q3W, INTRAVENOUS
     Route: 042
     Dates: start: 20020404, end: 20020424
  4. DOCETAXEL (DOCETAXEL) SOLUTION FOR INJECTION [Suspect]
  5. METFORMIN HCL [Concomitant]
  6. GRANISETRON (GRANISETRON HYDROCHLORIDE) [Concomitant]
  7. METHYLPREDNISOLONE [Concomitant]
  8. DEXAMETHASONE TAB [Concomitant]

REACTIONS (18)
  - BLOOD POTASSIUM DECREASED [None]
  - BLOOD SODIUM DECREASED [None]
  - CARDIO-RESPIRATORY ARREST [None]
  - CREPITATIONS [None]
  - DEHYDRATION [None]
  - DIARRHOEA [None]
  - HAEMOGLOBIN DECREASED [None]
  - HYPOGLYCAEMIC COMA [None]
  - LEUKOPENIA [None]
  - LUNG INFECTION [None]
  - LYMPHANGITIS [None]
  - METASTASES TO LUNG [None]
  - NEUTROPENIA [None]
  - OVERDOSE [None]
  - RENAL FAILURE [None]
  - SEPSIS [None]
  - THROMBOCYTOPENIA [None]
  - VOMITING [None]
